FAERS Safety Report 9403133 (Version 2)
Quarter: 2014Q2

REPORT INFORMATION
  Report Type: Report from Study
  Country: JP (occurrence: JP)
  Receive Date: 20130716
  Receipt Date: 20140425
  Transmission Date: 20141212
  Serious: Yes (Hospitalization)
  Sender: FDA-Public Use
  Company Number: JP-VIIV HEALTHCARE LIMITED-B0843896A

PATIENT
  Age: 45 Year
  Sex: Male

DRUGS (29)
  1. LEXIVA [Suspect]
     Indication: HIV INFECTION
     Dosage: 1400MG PER DAY
     Route: 048
     Dates: start: 20080714, end: 20080916
  2. LEXIVA [Suspect]
     Indication: HIV INFECTION
     Dosage: 700MG TWICE PER DAY
     Route: 048
     Dates: start: 20080917
  3. NORVIR SOFT GELATIN CAPSULES [Suspect]
     Indication: HIV INFECTION
     Route: 048
     Dates: end: 20050424
  4. NORVIR SOFT GELATIN CAPSULES [Suspect]
     Indication: HIV INFECTION
     Route: 048
     Dates: start: 20080714, end: 20110519
  5. NORVIR [Suspect]
     Indication: HIV INFECTION
     Route: 048
     Dates: start: 20110520
  6. TRUVADA [Suspect]
     Indication: HIV INFECTION
     Route: 048
     Dates: start: 20050524
  7. ISENTRESS [Suspect]
     Indication: HIV INFECTION
     Route: 048
     Dates: start: 20080714
  8. MINOFIT [Concomitant]
     Indication: HEPATITIS C
     Dosage: 60ML THREE TIMES PER WEEK
     Route: 065
  9. TAKEPRON [Concomitant]
     Indication: GASTRITIS
     Dosage: 30MG PER DAY
     Route: 048
  10. KOGENATE [Concomitant]
     Indication: FACTOR VIII DEFICIENCY
     Route: 065
     Dates: end: 20130909
  11. LACTULOSE [Concomitant]
     Indication: HEPATIC CIRRHOSIS
     Dosage: 30ML TWICE PER DAY
     Route: 048
     Dates: end: 20130704
  12. FUROSEMIDE [Concomitant]
     Indication: HEPATIC CIRRHOSIS
     Dosage: 20MG PER DAY
     Route: 048
     Dates: end: 20130704
  13. ALDACTONE A [Concomitant]
     Indication: HEPATIC CIRRHOSIS
     Dosage: 25MG PER DAY
     Route: 048
     Dates: end: 20130617
  14. AMINOLEBAN [Concomitant]
     Indication: HEPATIC CIRRHOSIS
     Dosage: 50G TWICE PER DAY
     Route: 065
     Dates: end: 20130704
  15. NEO-MINOPHAGEN-C [Concomitant]
     Indication: HEPATIC CIRRHOSIS
     Dosage: 60ML THREE TIMES PER WEEK
     Route: 065
     Dates: start: 20110413, end: 20130704
  16. URINORM [Concomitant]
     Indication: HYPERURICAEMIA
     Dosage: 25MG PER DAY
     Route: 048
     Dates: start: 20120910, end: 20130704
  17. PANTOSIN [Concomitant]
     Indication: HEPATIC CIRRHOSIS
     Dosage: 200MG THREE TIMES PER DAY
     Route: 048
     Dates: start: 20130315, end: 20130704
  18. TRIPAMIDE [Concomitant]
     Indication: HEPATIC CIRRHOSIS
     Dosage: 15MG PER DAY
     Route: 048
     Dates: start: 20130426, end: 20130704
  19. DIART [Concomitant]
     Indication: HEPATIC CIRRHOSIS
     Dosage: 60MG PER DAY
     Route: 048
     Dates: start: 20130501, end: 20130617
  20. ROCEPHIN [Concomitant]
     Indication: HEPATIC CIRRHOSIS
     Dosage: 2G PER DAY
     Route: 042
     Dates: start: 20130629, end: 20130701
  21. PEGINTRON [Concomitant]
     Indication: HEPATITIS
     Route: 058
     Dates: start: 20131007
  22. REBETOL [Concomitant]
     Indication: HEPATITIS
     Dosage: 400MG PER DAY
     Route: 048
     Dates: start: 20131007, end: 20131030
  23. MEDROL [Concomitant]
     Indication: IMMUNOSUPPRESSION
     Dosage: 16MG PER DAY
     Route: 065
     Dates: start: 20130916
  24. BAYASPIRIN [Concomitant]
     Indication: THROMBOSIS PROPHYLAXIS
     Dosage: 100MG PER DAY
     Route: 048
     Dates: start: 20130916
  25. BAKTAR [Concomitant]
     Indication: PROPHYLAXIS
     Dosage: 1IUAX PER DAY
     Route: 048
     Dates: start: 20130916, end: 20131119
  26. PROGRAF [Concomitant]
     Indication: IMMUNOSUPPRESSION
     Dosage: 1.5MG TWICE PER DAY
     Route: 065
     Dates: start: 20130916
  27. OLMETEC [Concomitant]
     Indication: HYPERTENSION
     Dosage: 20MG PER DAY
     Route: 048
     Dates: start: 20130916
  28. AMLODIN [Concomitant]
     Indication: HYPERTENSION
     Dosage: 5MG TWICE PER DAY
     Route: 048
     Dates: start: 20130916
  29. ALLOID G [Concomitant]
     Indication: GASTRITIS
     Dosage: 60ML FOUR TIMES PER DAY
     Route: 048
     Dates: start: 20130916, end: 20131106

REACTIONS (3)
  - Gastrointestinal haemorrhage [Recovering/Resolving]
  - Renal impairment [Recovered/Resolved]
  - Hyperuricaemia [Recovering/Resolving]
